FAERS Safety Report 5308031-4 (Version None)
Quarter: 2007Q2

REPORT INFORMATION
  Report Type: 
  Country: None (occurrence: None)
  Receive Date: 20070426
  Receipt Date: 20070417
  Transmission Date: 20071010
  Serious: Yes (Other)
  Sender: FDA-Public Use
  Company Number: ES-JNJFOC-20060905670

PATIENT
  Age: 4 Decade
  Sex: Male

DRUGS (4)
  1. REMICADE [Suspect]
     Route: 042
  2. REMICADE [Suspect]
     Route: 042
  3. REMICADE [Suspect]
     Indication: CROHN'S DISEASE
     Dosage: 4-5 DOSES GIVEN IN REPORTERS HOSPITAL, UNKNOWN HOW MANY HAD BEEN RECEIVED IN THE OTHER HOSPITAL.
     Route: 042
  4. AZATHIOPRINE SODIUM [Concomitant]
     Indication: CROHN'S DISEASE
     Route: 065

REACTIONS (2)
  - GUTTATE PSORIASIS [None]
  - PSORIASIS [None]
